FAERS Safety Report 16816522 (Version 1)
Quarter: 2019Q3

REPORT INFORMATION
  Report Type: Spontaneous
  Country: US (occurrence: US)
  Receive Date: 20190917
  Receipt Date: 20190917
  Transmission Date: 20191005
  Serious: No
  Sender: FDA-Public Use
  Company Number: US-ALLERGAN-1930911US

PATIENT
  Sex: Male

DRUGS (3)
  1. LINZESS [Suspect]
     Active Substance: LINACLOTIDE
     Indication: CONSTIPATION
     Dosage: UNK
     Route: 048
     Dates: start: 201907
  2. UNSPECIFIED PILL IN ER [Concomitant]
     Route: 048
  3. UNSPECIFED HTN MEDICATION [Concomitant]
     Indication: HYPERTENSION
     Dosage: UNK

REACTIONS (5)
  - Hernia [Unknown]
  - Decreased appetite [Unknown]
  - Haemorrhoids [Unknown]
  - Weight decreased [Unknown]
  - Bowel movement irregularity [Unknown]
